FAERS Safety Report 25295434 (Version 1)
Quarter: 2025Q2

REPORT INFORMATION
  Report Type: Spontaneous
  Country: US (occurrence: US)
  Receive Date: 20250511
  Receipt Date: 20250511
  Transmission Date: 20250716
  Serious: No
  Sender: UCB
  Company Number: US-UCBSA-2024016815

PATIENT
  Sex: Female

DRUGS (4)
  1. CIMZIA [Suspect]
     Active Substance: CERTOLIZUMAB PEGOL
     Indication: Psoriatic arthropathy
     Dosage: 400 MILLIGRAM, EV 2 WEEKS(QOW)
     Route: 058
     Dates: start: 20240306, end: 2024
  2. CIMZIA [Suspect]
     Active Substance: CERTOLIZUMAB PEGOL
     Indication: Ankylosing spondylitis
     Dosage: 200 MILLIGRAM, EV 2 WEEKS(QOW)
     Route: 058
     Dates: start: 2024, end: 2024
  3. CIMZIA [Suspect]
     Active Substance: CERTOLIZUMAB PEGOL
     Dosage: 400 MILLIGRAM, EV 4 WEEKS
     Route: 058
     Dates: start: 2024
  4. CELEBREX [Concomitant]
     Active Substance: CELECOXIB
     Indication: Product used for unknown indication
     Dates: end: 2024

REACTIONS (14)
  - Abdominal discomfort [Recovered/Resolved]
  - Headache [Unknown]
  - Abdominal distension [Unknown]
  - Flatulence [Unknown]
  - Back pain [Unknown]
  - Arthralgia [Recovered/Resolved]
  - Pain [Unknown]
  - Influenza like illness [Recovered/Resolved]
  - Chills [Recovered/Resolved]
  - Middle insomnia [Unknown]
  - Fatigue [Unknown]
  - Mass [Recovered/Resolved]
  - Maternal exposure during pregnancy [Unknown]
  - Therapeutic product effect incomplete [Unknown]

NARRATIVE: CASE EVENT DATE: 20240101
